FAERS Safety Report 4996797-2 (Version None)
Quarter: 2006Q2

REPORT INFORMATION
  Report Type: 
  Country: None (occurrence: None)
  Receive Date: 20060508
  Receipt Date: 20060508
  Transmission Date: 20061013
  Serious: Yes (Disabling, Other)
  Sender: FDA-Public Use
  Company Number: None

PATIENT
  Age: 62 Year
  Sex: Female
  Weight: 56.6996 kg

DRUGS (1)
  1. BONIVA [Suspect]
     Indication: OSTEOPOROSIS
     Dosage: 1 PILL 1 A MONTH PO
     Route: 048
     Dates: start: 20050913, end: 20051113

REACTIONS (2)
  - MUSCULAR WEAKNESS [None]
  - SHOULDER PAIN [None]
